FAERS Safety Report 8484671-9 (Version None)
Quarter: 2012Q3

REPORT INFORMATION
  Report Type: 
  Country: None (occurrence: None)
  Receive Date: 20120703
  Receipt Date: 20120412
  Transmission Date: 20120928
  Serious: No
  Sender: FDA-Public Use
  Company Number: US-TEVA-333065USA

PATIENT
  Sex: Female
  Weight: 61.29 kg

DRUGS (7)
  1. ROPINIROLE HYDROCHLORIDE [Concomitant]
     Indication: MUSCLE SPASMS
     Dosage: 2 MILLIGRAM;
     Route: 048
  2. KLONOPIN [Concomitant]
     Indication: ANXIETY
     Dosage: 3 MILLIGRAM;
     Route: 048
  3. ATENOLOL [Concomitant]
     Indication: BLOOD PRESSURE
     Dosage: 50 MILLIGRAM;
     Route: 048
  4. METHADONE HCL [Concomitant]
     Indication: SWELLING
     Dosage: 10 MILLIGRAM;
     Route: 048
  5. PANADEINE CO [Concomitant]
     Indication: SWELLING
     Route: 048
  6. NUVIGIL [Suspect]
     Indication: NARCOLEPSY
     Route: 048
     Dates: start: 20120201, end: 20120207
  7. LYRICA [Concomitant]
     Indication: STEVENS-JOHNSON SYNDROME
     Route: 048

REACTIONS (1)
  - VISUAL ACUITY REDUCED [None]
